FAERS Safety Report 15892818 (Version 1)
Quarter: 2019Q1

REPORT INFORMATION
  Report Type: Report from Study
  Country: US (occurrence: US)
  Receive Date: 20190130
  Receipt Date: 20190130
  Transmission Date: 20190417
  Serious: No
  Sender: FDA-Public Use
  Company Number: US-EXELIXIS-CABO-18015211

PATIENT
  Age: 59 Year
  Sex: Female

DRUGS (1)
  1. CABOMETYX [Suspect]
     Active Substance: CABOZANTINIB S-MALATE
     Indication: METASTASES TO BONE
     Dosage: 60 MG, QD
     Route: 048
     Dates: start: 20180714

REACTIONS (6)
  - Insomnia [Unknown]
  - Disturbance in attention [Unknown]
  - Off label use [Unknown]
  - Confusional state [Recovering/Resolving]
  - Fatigue [Unknown]
  - Memory impairment [Unknown]

NARRATIVE: CASE EVENT DATE: 20180716
